FAERS Safety Report 4946048-X (Version None)
Quarter: 2006Q1

REPORT INFORMATION
  Report Type: 
  Country: None (occurrence: None)
  Receive Date: 20060316
  Receipt Date: 20051207
  Transmission Date: 20060701
  Serious: Yes (Hospitalization)
  Sender: FDA-Public Use
  Company Number: US-MERCK-0512USA01315

PATIENT
  Age: 53 Year
  Sex: Female
  Weight: 60 kg

DRUGS (2)
  1. VIOXX [Suspect]
     Indication: BACK PAIN
     Route: 048
     Dates: start: 20020101, end: 20030801
  2. VIOXX [Suspect]
     Route: 048
     Dates: start: 20020101, end: 20030801

REACTIONS (14)
  - ANXIETY [None]
  - ASTHMA [None]
  - BRONCHITIS ACUTE [None]
  - CARDIAC ANEURYSM [None]
  - CARDIAC FAILURE CONGESTIVE [None]
  - CHEST PAIN [None]
  - CONJUNCTIVITIS VIRAL [None]
  - DRUG INEFFECTIVE [None]
  - GASTROOESOPHAGEAL REFLUX DISEASE [None]
  - OVERDOSE [None]
  - PNEUMONIA [None]
  - PULMONARY HYPERTENSION [None]
  - RASH VESICULAR [None]
  - STATUS ASTHMATICUS [None]
